FAERS Safety Report 9219781 (Version 1)
Quarter: 2013Q2

REPORT INFORMATION
  Report Type: Spontaneous
  Country: US (occurrence: None)
  Receive Date: 20130408
  Receipt Date: 20130408
  Transmission Date: 20140414
  Serious: Yes (Hospitalization)
  Sender: FDA-Public Use
  Company Number: None

PATIENT
  Age: 57 Year
  Sex: Female

DRUGS (2)
  1. XELODA [Suspect]
     Dosage: 2000MG AM:  BID  PO?1500MG PM
     Route: 048
     Dates: start: 20130116, end: 20130212
  2. XELODA [Suspect]
     Indication: BREAST CANCER
     Dosage: 2000MG AM:  BID  PO?1500MG PM
     Route: 048
     Dates: start: 20130116, end: 20130212

REACTIONS (5)
  - Palmar-plantar erythrodysaesthesia syndrome [None]
  - Diarrhoea [None]
  - Decreased appetite [None]
  - Dizziness [None]
  - Vomiting [None]
